FAERS Safety Report 22760224 (Version 3)
Quarter: 2024Q1

REPORT INFORMATION
  Report Type: Spontaneous
  Country: US (occurrence: US)
  Receive Date: 20230728
  Receipt Date: 20240111
  Transmission Date: 20240409
  Serious: Yes (Hospitalization, Other)
  Sender: FDA-Public Use
  Company Number: US-HIKMA PHARMACEUTICALS USA INC.-US-H14001-23-63645

PATIENT
  Age: 3 Year
  Sex: Male

DRUGS (17)
  1. DEPAKENE [Suspect]
     Active Substance: VALPROIC ACID
     Indication: Seizure
     Dosage: UNKNOWN
     Route: 065
  2. DIPHENHYDRAMINE [Suspect]
     Active Substance: DIPHENHYDRAMINE
     Indication: Product used for unknown indication
     Dosage: UNKNOWN
     Route: 065
  3. FOSPHENYTOIN [Suspect]
     Active Substance: FOSPHENYTOIN
     Indication: Epilepsy
     Dosage: UNKNOWN
     Route: 065
  4. LAMICTAL [Suspect]
     Active Substance: LAMOTRIGINE
     Indication: Seizure
     Dosage: UNKNOWN
     Route: 065
  5. ONFI [Suspect]
     Active Substance: CLOBAZAM
     Indication: Product used for unknown indication
     Dosage: UNKNOWN
     Route: 065
  6. TEGRETOL [Suspect]
     Active Substance: CARBAMAZEPINE
     Indication: Seizure
     Dosage: UNKNOWN
     Route: 065
  7. BIFIDOBACTERIUM INFANTIS;LACTOBACILLUS ACIDOPHILUS [Concomitant]
     Indication: Product used for unknown indication
     Dosage: UNKNOWN
     Route: 065
  8. CALMOSEPTINE [MENTHOL;ZINC OXIDE] [Concomitant]
     Indication: Dermatitis diaper
     Dosage: UNKNOWN
     Route: 065
  9. CARNITOR [Concomitant]
     Active Substance: LEVOCARNITINE
     Indication: Product used for unknown indication
     Dosage: UNKNOWN
     Route: 065
  10. DESITIN [COD-LIVER OIL;ZINC OXIDE] [Concomitant]
     Indication: Product used for unknown indication
     Dosage: UNKNOWN
     Route: 065
  11. ENFAMIL D VI SOL [Concomitant]
     Indication: Product used for unknown indication
     Dosage: UNKNOWN
     Route: 065
  12. FERROUS SULFATE [Concomitant]
     Active Substance: FERROUS SULFATE
     Indication: Product used for unknown indication
     Dosage: UNKNOWN
     Route: 065
  13. GLYCOLAX [Concomitant]
     Active Substance: POLYETHYLENE GLYCOL 3350
     Indication: Constipation
     Dosage: UNKNOWN
     Route: 065
  14. LANSOPRAZOLE [Concomitant]
     Active Substance: LANSOPRAZOLE
     Indication: Gastrooesophageal reflux disease
     Dosage: UNKNOWN
     Route: 065
  15. MELATONIN [Concomitant]
     Active Substance: MELATONIN
     Indication: Insomnia
     Dosage: UNKNOWN
     Route: 065
  16. PYRIDOXINE [Concomitant]
     Active Substance: PYRIDOXINE
     Indication: Product used for unknown indication
     Dosage: UNKNOWN
     Route: 065
  17. ZOFRAN [Concomitant]
     Active Substance: ONDANSETRON HYDROCHLORIDE
     Indication: Product used for unknown indication
     Dosage: UNKNOWN
     Route: 065

REACTIONS (25)
  - Seizure [Recovered/Resolved]
  - Angioedema [Unknown]
  - Lip swelling [Unknown]
  - Swelling face [Unknown]
  - Salivary hypersecretion [Unknown]
  - Retching [Unknown]
  - COVID-19 [Unknown]
  - Pyelocaliectasis [Unknown]
  - Viral infection [Unknown]
  - Hepatic enzyme increased [Unknown]
  - Iron deficiency anaemia [Unknown]
  - Status epilepticus [Unknown]
  - Cerebral disorder [Unknown]
  - Drug reaction with eosinophilia and systemic symptoms [Unknown]
  - Astigmatism [Unknown]
  - Teething [Unknown]
  - Fatigue [Unknown]
  - Crying [Unknown]
  - Blood albumin increased [Unknown]
  - Blood glucose increased [Unknown]
  - Mean cell haemoglobin increased [Unknown]
  - Mean cell volume increased [Unknown]
  - Platelet count decreased [Unknown]
  - Condition aggravated [Not Recovered/Not Resolved]
  - Drug ineffective [Unknown]

NARRATIVE: CASE EVENT DATE: 20230621
